FAERS Safety Report 8055831-6 (Version None)
Quarter: 2012Q1

REPORT INFORMATION
  Report Type: 
  Country: None (occurrence: None)
  Receive Date: 20120119
  Receipt Date: 20120119
  Transmission Date: 20120608
  Serious: Yes (Hospitalization)
  Sender: FDA-Public Use
  Company Number: None

PATIENT
  Age: 62 Year
  Sex: Male

DRUGS (1)
  1. LITHIUM CARBONATE [Suspect]
     Dosage: 600MG
     Route: 048

REACTIONS (3)
  - TREMOR [None]
  - MENTAL STATUS CHANGES [None]
  - BLOOD CREATININE INCREASED [None]
